FAERS Safety Report 10333621 (Version 1)
Quarter: 2014Q3

REPORT INFORMATION
  Report Type: Spontaneous
  Country: IN (occurrence: IN)
  Receive Date: 20140723
  Receipt Date: 20140723
  Transmission Date: 20150326
  Serious: Yes (Other)
  Sender: FDA-Public Use
  Company Number: IN-ACCORD-024909

PATIENT
  Age: 27 Year
  Sex: Female

DRUGS (3)
  1. ETOPOSIDE. [Suspect]
     Active Substance: ETOPOSIDE
     Indication: OVARIAN SERTOLI-LEYDIG CELL TUMOUR
     Dosage: RECEIVED TOTAL 4 CYCLE OF CHEMOTHERAPY AT 3 WEEK INTERVAL
  2. CISPLATIN. [Suspect]
     Active Substance: CISPLATIN
     Indication: OVARIAN SERTOLI-LEYDIG CELL TUMOUR
     Dosage: RECEIVED TOTAL 4 CYCLE OF CHEMOTHERAPY AT 3 WEEK INTERVAL
  3. BLEOMYCIN [Suspect]
     Active Substance: BLEOMYCIN SULFATE
     Indication: OVARIAN SERTOLI-LEYDIG CELL TUMOUR
     Dosage: RECEIVED TOTAL 4 CYCLE OF CHEMOTHERAPY AT 3 WEEK INTERVAL

REACTIONS (2)
  - Abortion [Unknown]
  - Exposure during pregnancy [Unknown]
